FAERS Safety Report 4429362-6 (Version None)
Quarter: 2004Q3

REPORT INFORMATION
  Report Type: 
  Country: None (occurrence: None)
  Receive Date: 20040816
  Receipt Date: 20040803
  Transmission Date: 20050211
  Serious: Yes (Hospitalization)
  Sender: FDA-Public Use
  Company Number: 6008433

PATIENT
  Sex: Male

DRUGS (5)
  1. BISOPROLOL FUMARATE [Suspect]
     Indication: CARDIAC FAILURE CONGESTIVE
     Dosage: 3,75 MG (3, 75 MG, 1 D) ORAL
     Route: 048
     Dates: start: 20040205
  2. FUROSEMIDE [Concomitant]
  3. KCL (POTASSIUM CHLORIDE) [Concomitant]
  4. ASPEGIC 1000 [Concomitant]
  5. INSULATARD NPH HUMAN [Concomitant]

REACTIONS (16)
  - BLOOD CREATININE INCREASED [None]
  - BLOOD PRESSURE DECREASED [None]
  - BRADYCARDIA [None]
  - BRONCHOPNEUMONIA [None]
  - BUNDLE BRANCH BLOCK LEFT [None]
  - BUNDLE BRANCH BLOCK RIGHT [None]
  - CARDIAC FAILURE [None]
  - CONDITION AGGRAVATED [None]
  - FACE INJURY [None]
  - HEPATOMEGALY [None]
  - LUNG CREPITATION [None]
  - PERIORBITAL HAEMATOMA [None]
  - PULMONARY OEDEMA [None]
  - PULMONARY VASCULAR DISORDER [None]
  - SYNCOPE [None]
  - VENOUS PRESSURE JUGULAR INCREASED [None]
